FAERS Safety Report 16947580 (Version 3)
Quarter: 2020Q2

REPORT INFORMATION
  Report Type: Spontaneous
  Country: CA (occurrence: CA)
  Receive Date: 20191022
  Receipt Date: 20200415
  Transmission Date: 20200713
  Serious: Yes (Death, Other)
  Sender: FDA-Public Use
  Company Number: CA-TEVA-2019-CA-1124599

PATIENT
  Age: 4 Year
  Sex: Male

DRUGS (9)
  1. CYTARABINE. [Suspect]
     Active Substance: CYTARABINE
     Indication: IMMUNOSUPPRESSANT DRUG THERAPY
     Route: 065
  2. VINCRISTINE SULFATE. [Suspect]
     Active Substance: VINCRISTINE SULFATE
     Indication: IMMUNOSUPPRESSANT DRUG THERAPY
     Route: 065
  3. CANCIDAS [Suspect]
     Active Substance: CASPOFUNGIN ACETATE
     Indication: ANTIFUNGAL PROPHYLAXIS
     Route: 065
  4. METHYLPREDNISOLONE SODIUM SUCCINATE. [Suspect]
     Active Substance: METHYLPREDNISOLONE SODIUM SUCCINATE
     Indication: IMMUNOSUPPRESSANT DRUG THERAPY
     Route: 065
  5. ETOPOSIDE. [Suspect]
     Active Substance: ETOPOSIDE
     Indication: IMMUNOSUPPRESSANT DRUG THERAPY
     Route: 065
  6. CYCLOPHOSPHAMIDE. [Suspect]
     Active Substance: CYCLOPHOSPHAMIDE
     Indication: IMMUNOSUPPRESSANT DRUG THERAPY
     Route: 065
  7. DAUNOMYCIN HCL [Suspect]
     Active Substance: DAUNORUBICIN HYDROCHLORIDE
     Indication: IMMUNOSUPPRESSANT DRUG THERAPY
     Route: 065
  8. RITUXIMAB GP2013 [Suspect]
     Active Substance: RITUXIMAB
     Indication: IMMUNOSUPPRESSANT DRUG THERAPY
     Route: 065
  9. CYTARABINE INJECTION [Suspect]
     Active Substance: CYTARABINE
     Indication: IMMUNOSUPPRESSANT DRUG THERAPY
     Route: 065

REACTIONS (5)
  - Lower respiratory tract infection fungal [Fatal]
  - Product use in unapproved indication [Fatal]
  - Aspergillus infection [Fatal]
  - Central nervous system fungal infection [Fatal]
  - Systemic mycosis [Fatal]
